FAERS Safety Report 6928386-4 (Version None)
Quarter: 2010Q3

REPORT INFORMATION
  Report Type: 
  Country: None (occurrence: None)
  Receive Date: 20100817
  Receipt Date: 20100805
  Transmission Date: 20110219
  Serious: Yes (Death, Hospitalization, Other)
  Sender: FDA-Public Use
  Company Number: GB-GENZYME-CLOF-1000925

PATIENT
  Sex: Male

DRUGS (9)
  1. EVOLTRA [Suspect]
     Indication: ACUTE MYELOID LEUKAEMIA
     Dosage: 36 MG, QDX5
     Route: 042
     Dates: start: 20100318, end: 20100322
  2. BENDROFLUAZIDE [Concomitant]
     Indication: PRODUCT USED FOR UNKNOWN INDICATION
  3. ALLOPURINOL [Concomitant]
     Indication: PRODUCT USED FOR UNKNOWN INDICATION
     Dosage: UNK
  4. SIMVASTATIN [Concomitant]
     Indication: PRODUCT USED FOR UNKNOWN INDICATION
     Dosage: UNK
  5. COD LIVER OIL [Concomitant]
     Indication: PRODUCT USED FOR UNKNOWN INDICATION
     Dosage: UNK
  6. NORMAL SALINE [Concomitant]
     Indication: PRODUCT USED FOR UNKNOWN INDICATION
     Dosage: 100 ML, QD
     Route: 042
     Dates: start: 20100318, end: 20100322
  7. ANTIBIOTICS [Concomitant]
     Indication: ANTIBIOTIC THERAPY
     Dosage: UNK
  8. ANTIFUNGALS [Suspect]
     Indication: ANTIFUNGAL TREATMENT
  9. OXYGEN [Suspect]
     Indication: LIFE SUPPORT
     Route: 055

REACTIONS (6)
  - ACUTE MYELOID LEUKAEMIA [None]
  - FALL [None]
  - NEUTROPENIC SEPSIS [None]
  - PNEUMONIA [None]
  - PNEUMONIA STAPHYLOCOCCAL [None]
  - RESPIRATORY DISTRESS [None]
